FAERS Safety Report 7541768-5 (Version None)
Quarter: 2011Q2

REPORT INFORMATION
  Report Type: 
  Country: None (occurrence: None)
  Receive Date: 20110613
  Receipt Date: 20110607
  Transmission Date: 20111010
  Serious: Yes (Hospitalization, Other)
  Sender: FDA-Public Use
  Company Number: US-JNJFOC-20090905505

PATIENT
  Sex: Male

DRUGS (4)
  1. LEVAQUIN [Suspect]
     Indication: BACTERIAL INFECTION
     Route: 048
  2. LEVAQUIN [Suspect]
     Indication: PROSTATE INFECTION
     Route: 048
  3. STEROIDS NOS [Suspect]
     Indication: ILL-DEFINED DISORDER
     Route: 065
  4. PREDNISONE [Suspect]
     Indication: SARCOIDOSIS
     Route: 065

REACTIONS (2)
  - MENISCUS LESION [None]
  - TENDON INJURY [None]
